FAERS Safety Report 20933843 (Version 2)
Quarter: 2022Q3

REPORT INFORMATION
  Report Type: Spontaneous
  Country: US (occurrence: US)
  Receive Date: 20220608
  Receipt Date: 20220714
  Transmission Date: 20221027
  Serious: No
  Sender: FDA-Public Use
  Company Number: US-SUNOVION-2022SUN001692

PATIENT
  Sex: Female

DRUGS (3)
  1. LUNESTA [Suspect]
     Active Substance: ESZOPICLONE
     Dosage: UNK
     Route: 048
  2. LUNESTA [Suspect]
     Active Substance: ESZOPICLONE
     Dosage: 2 MG, HS
     Route: 048
  3. LUNESTA [Suspect]
     Active Substance: ESZOPICLONE
     Dosage: 4 MG
     Route: 048
     Dates: start: 20220525

REACTIONS (5)
  - Fatigue [Unknown]
  - Drug tolerance [Unknown]
  - Drug ineffective [Unknown]
  - Insomnia [Unknown]
  - Overdose [Unknown]

NARRATIVE: CASE EVENT DATE: 20220525
